FAERS Safety Report 25994194 (Version 1)
Quarter: 2025Q4

REPORT INFORMATION
  Report Type: Spontaneous
  Country: EU (occurrence: EU)
  Receive Date: 20251104
  Receipt Date: 20251104
  Transmission Date: 20260119
  Serious: Yes (Death, Life-Threatening, Hospitalization, Other)
  Sender: Onesource Specialty Pharma
  Company Number: EU-STRIDES ARCOLAB LIMITED-2025OS001108

PATIENT
  Age: 26 Year
  Sex: Female

DRUGS (6)
  1. IBUPROFEN [Suspect]
     Active Substance: IBUPROFEN
     Indication: Product used for unknown indication
     Dosage: PILL
     Route: 065
  2. AGOMELATINE [Suspect]
     Active Substance: AGOMELATINE
     Indication: Product used for unknown indication
     Dosage: PILL
     Route: 065
  3. ACETAMINOPHEN [Suspect]
     Active Substance: ACETAMINOPHEN
     Indication: Product used for unknown indication
     Dosage: PILL
     Route: 065
  4. ASPIRIN [Suspect]
     Active Substance: ASPIRIN
     Indication: Product used for unknown indication
     Dosage: PILL
     Route: 065
  5. CAFFEINE [Suspect]
     Active Substance: CAFFEINE
     Indication: Product used for unknown indication
     Dosage: PILL
     Route: 065
  6. PAROXETINE [Suspect]
     Active Substance: PAROXETINE
     Indication: Depression
     Dosage: PILL
     Route: 065

REACTIONS (19)
  - Completed suicide [Fatal]
  - Overdose [Fatal]
  - Toxicity to various agents [Fatal]
  - Serotonin syndrome [Fatal]
  - Acute respiratory distress syndrome [Fatal]
  - Respiratory failure [Unknown]
  - Lung infiltration [Unknown]
  - Tracheal injury [Unknown]
  - Somnolence [Unknown]
  - Disorientation [Unknown]
  - Tachycardia [Unknown]
  - Pneumonia aspiration [Unknown]
  - Delirium [Unknown]
  - Agitation [Unknown]
  - Clonus [Unknown]
  - Lividity [Unknown]
  - Mydriasis [Unknown]
  - Hypotension [Unknown]
  - Pyrexia [Unknown]
